FAERS Safety Report 8874947 (Version 1)
Quarter: 2012Q4

REPORT INFORMATION
  Report Type: 
  Country: US (occurrence: US)
  Receive Date: 20121023
  Receipt Date: 20121023
  Transmission Date: 20130627
  Serious: No
  Sender: FDA-Public Use
  Company Number: US-ROCHE-GNE220876

PATIENT
  Sex: Female
  Weight: 84.9 kg

DRUGS (2)
  1. RAPTIVA [Suspect]
     Indication: PSORIASIS
     Dosage: 0.9 ml, 1/week
     Route: 058
     Dates: start: 20050622
  2. RAPTIVA [Suspect]
     Indication: PUSTULAR PSORIASIS

REACTIONS (4)
  - Psoriasis [Not Recovered/Not Resolved]
  - Pruritus [Unknown]
  - Pain [Unknown]
  - Skin exfoliation [Unknown]
